FAERS Safety Report 4391968-0 (Version None)
Quarter: 2004Q3

REPORT INFORMATION
  Report Type: 
  Country: None (occurrence: None)
  Receive Date: 20040701
  Receipt Date: 20040623
  Transmission Date: 20050211
  Serious: Yes (Hospitalization)
  Sender: FDA-Public Use
  Company Number: CIP04000973

PATIENT
  Age: 88 Year
  Sex: Male
  Weight: 83.9 kg

DRUGS (6)
  1. ASACOL [Suspect]
     Indication: COLITIS ULCERATIVE
     Dosage: 400 MG THREE TIMES DAILY, ORAL
     Route: 048
     Dates: start: 19980101
  2. INSULIN /CZE/ (INSULIN) [Concomitant]
  3. IMDUR (ISOSRBIDE MONONITRARE) [Concomitant]
  4. ZOCOR [Concomitant]
  5. SYNTHROID (LECOTHYROXINE SODIUM) [Concomitant]
  6. LANOXIN [Concomitant]

REACTIONS (5)
  - COLITIS [None]
  - GASTRIC ULCER HAEMORRHAGE [None]
  - HAEMOGLOBIN DECREASED [None]
  - LUNG ABSCESS [None]
  - PEPTIC ULCER HAEMORRHAGE [None]
